FAERS Safety Report 9458787 (Version 3)
Quarter: 2013Q4

REPORT INFORMATION
  Report Type: Spontaneous
  Country: US (occurrence: US)
  Receive Date: 20130814
  Receipt Date: 20131118
  Transmission Date: 20140711
  Serious: Yes (Hospitalization)
  Sender: FDA-Public Use
  Company Number: US-BRISTOL-MYERS SQUIBB COMPANY-19181346

PATIENT
  Age: 31 Year
  Sex: Female

DRUGS (5)
  1. ABILIFY [Suspect]
     Indication: SCHIZOPHRENIA, PARANOID TYPE
     Dosage: 10 MG FORM 26-JUL-2013
     Route: 048
     Dates: start: 20130715
  2. ABILIFY MAINTENA INJECTION [Suspect]
     Indication: SCHIZOPHRENIA, PARANOID TYPE
     Route: 030
     Dates: start: 20130726
  3. LITHIUM [Concomitant]
  4. CAPOTEN [Concomitant]
  5. COGENTIN [Concomitant]

REACTIONS (3)
  - Schizophrenia, paranoid type [Unknown]
  - Insomnia [Unknown]
  - Drug ineffective [Unknown]
